FAERS Safety Report 7323961-X (Version None)
Quarter: 2011Q1

REPORT INFORMATION
  Report Type: 
  Country: None (occurrence: None)
  Receive Date: 20110301
  Receipt Date: 20110216
  Transmission Date: 20110831
  Serious: Yes (Hospitalization)
  Sender: FDA-Public Use
  Company Number: B0702269A

PATIENT
  Sex: Female
  Weight: 27 kg

DRUGS (4)
  1. TENOFOVIR [Suspect]
     Indication: HIV INFECTION
     Dosage: 300MG PER DAY
     Route: 048
     Dates: start: 20091002
  2. LOPINAVIR/RITONAVIR [Suspect]
     Indication: HIV INFECTION
     Dosage: 500MG TWICE PER DAY
     Route: 048
     Dates: start: 20091002
  3. STAVUDINE [Suspect]
     Indication: HIV INFECTION
     Dosage: 30MG TWICE PER DAY
     Route: 048
     Dates: start: 20091002
  4. MARAVIROC [Suspect]
     Indication: HIV INFECTION
     Dosage: 75MG TWICE PER DAY
     Route: 048
     Dates: start: 20091002

REACTIONS (1)
  - LACTIC ACIDOSIS [None]
